FAERS Safety Report 6861259-4 (Version None)
Quarter: 2010Q3

REPORT INFORMATION
  Report Type: 
  Country: None (occurrence: None)
  Receive Date: 20100720
  Receipt Date: 20100713
  Transmission Date: 20110219
  Serious: Yes (Other)
  Sender: FDA-Public Use
  Company Number: DE-SANOFI-AVENTIS-2010SA041346

PATIENT
  Age: 76 Year

DRUGS (3)
  1. CLOPIDOGREL BISULFATE [Suspect]
     Route: 065
  2. ASPIRIN [Concomitant]
  3. EPTIFIBATIDE [Concomitant]

REACTIONS (1)
  - CARDIAC TAMPONADE [None]
